FAERS Safety Report 16796185 (Version 1)
Quarter: 2019Q3

REPORT INFORMATION
  Report Type: Report from Study
  Country: BE (occurrence: BE)
  Receive Date: 20190911
  Receipt Date: 20190911
  Transmission Date: 20191005
  Serious: Yes (Hospitalization)
  Sender: FDA-Public Use
  Company Number: PHHO2018BE013516

PATIENT
  Age: 51 Year
  Sex: Female
  Weight: 68 kg

DRUGS (2)
  1. ICL670A [Suspect]
     Active Substance: DEFERASIROX
     Dosage: 270 MG, QD
     Route: 048
     Dates: start: 20181227
  2. ICL670A [Suspect]
     Active Substance: DEFERASIROX
     Indication: HEREDITARY HAEMOCHROMATOSIS
     Dosage: 450 MG, QD
     Route: 048
     Dates: start: 20180806, end: 20181222

REACTIONS (3)
  - Transaminases increased [Recovered/Resolved]
  - Renal impairment [Recovered/Resolved]
  - Nausea [Recovered/Resolved]

NARRATIVE: CASE EVENT DATE: 201812
